FAERS Safety Report 19504770 (Version 2)
Quarter: 2021Q3

REPORT INFORMATION
  Report Type: Spontaneous
  Country: US (occurrence: US)
  Receive Date: 20210708
  Receipt Date: 20210712
  Transmission Date: 20211014
  Serious: Yes (Hospitalization, Other)
  Sender: FDA-Public Use
  Company Number: US-LUPIN PHARMACEUTICALS INC.-2021-11104

PATIENT
  Age: 16 Year
  Sex: Female

DRUGS (22)
  1. LORAZEPAM. [Concomitant]
     Active Substance: LORAZEPAM
     Indication: AGITATION
     Dosage: 1 MILLIGRAM (ON DAY 4 AND DAY 20)
     Route: 048
  2. CHLORPROMAZINE. [Concomitant]
     Active Substance: CHLORPROMAZINE
     Indication: AGGRESSION
     Dosage: 50 MILLIGRAM (ON DAY 4, DAY 5, DAY 6, DAY 11, DAY 15, DAY 17, DAY 28 AND DAY 29)
     Route: 048
  3. TRAZODONE [Concomitant]
     Active Substance: TRAZODONE HYDROCHLORIDE
     Indication: INSOMNIA
     Dosage: 25 MILLIGRAM (ON DAY 1, DAY 2, DAY 8, DAY 10, DAY 12, DAY 13, DAY 15, DAY 19 AND DAY 20)
     Route: 065
  4. GUANFACINE. [Concomitant]
     Active Substance: GUANFACINE
     Dosage: 4 MILLIGRAM (INCREASED TO 4MG ON DAY 17)
     Route: 048
  5. ESCITALOPRAM [Suspect]
     Active Substance: ESCITALOPRAM OXALATE
     Indication: DEPRESSION
     Dosage: 5 MILLIGRAM, QD (ONCE IN EVERY MORNING)
     Route: 048
  6. LORAZEPAM. [Concomitant]
     Active Substance: LORAZEPAM
     Indication: AGGRESSION
     Dosage: 2 MILLIGRAM (ON DAY 4, DAY 5, DAY 6, DAY 9, DAY 10, DAY 11, DAY 15, DAY 16, DAY 17 AND DAY 18)
     Route: 048
  7. FLUTICASONE. [Concomitant]
     Active Substance: FLUTICASONE
     Indication: ASTHMA
     Dosage: UNK, QD (1 PUFF EVERY MORNING)
     Route: 065
  8. LORAZEPAM. [Concomitant]
     Active Substance: LORAZEPAM
     Dosage: 1 MILLIGRAM (ON DAY 21)
     Route: 030
  9. CHLORPROMAZINE. [Concomitant]
     Active Substance: CHLORPROMAZINE
     Dosage: 100 MILLIGRAM (ON DAY 16 (50MG X 2))
     Route: 048
  10. LAMOTRIGINE. [Concomitant]
     Active Substance: LAMOTRIGINE
     Dosage: 50 MILLIGRAM (ON DAY 28)
     Route: 065
  11. ESCITALOPRAM [Suspect]
     Active Substance: ESCITALOPRAM OXALATE
     Dosage: 10 MILLIGRAM (ON DAY 6)
     Route: 048
  12. LORAZEPAM. [Concomitant]
     Active Substance: LORAZEPAM
     Dosage: 2 MILLIGRAM (ON DAY 22)
     Route: 030
  13. CHLORPROMAZINE. [Concomitant]
     Active Substance: CHLORPROMAZINE
     Dosage: 25 MILLIGRAM (ON DAY 20, DAY 21 AND DAY 23)
     Route: 048
  14. LORAZEPAM. [Concomitant]
     Active Substance: LORAZEPAM
     Dosage: 2 MILLIGRAM (ON DAY 19 (1MG X 2))
     Route: 048
  15. LAMOTRIGINE. [Concomitant]
     Active Substance: LAMOTRIGINE
     Indication: AFFECTIVE DISORDER
     Dosage: 25 MILLIGRAM (ON DAY 23)
     Route: 065
  16. GUANFACINE. [Concomitant]
     Active Substance: GUANFACINE
     Indication: ATTENTION DEFICIT HYPERACTIVITY DISORDER
     Dosage: 1 MILLIGRAM (ADDED ON 4TH DAY OF ADMISSION)
     Route: 048
  17. GUANFACINE. [Concomitant]
     Active Substance: GUANFACINE
     Dosage: 3 MILLIGRAM (3MG ON DAY 8)
     Route: 048
  18. GUANFACINE. [Concomitant]
     Active Substance: GUANFACINE
     Dosage: 2 MILLIGRAM (INCREASED TO 2 MG ON DAY 5 OF HER ADMISSION)
     Route: 048
  19. CHLORPROMAZINE. [Concomitant]
     Active Substance: CHLORPROMAZINE
     Indication: AGITATION
     Dosage: 50 MILLIGRAM (ON DAY 2, DAY 6, DAY 22 AND DAY 29)
     Route: 030
  20. CHLORPROMAZINE. [Concomitant]
     Active Substance: CHLORPROMAZINE
     Dosage: 25 MILLIGRAM (ON DAY 21)
     Route: 030
  21. ESCITALOPRAM [Suspect]
     Active Substance: ESCITALOPRAM OXALATE
     Dosage: 15 MILLIGRAM (ON DAY 8 INCREASED)
     Route: 048
  22. ESCITALOPRAM [Suspect]
     Active Substance: ESCITALOPRAM OXALATE
     Dosage: 10 MILLIGRAM (ON DAY 23 DECREASED)
     Route: 048

REACTIONS (2)
  - Abnormal behaviour [Recovering/Resolving]
  - Treatment noncompliance [Unknown]
